FAERS Safety Report 4582095-8 (Version None)
Quarter: 2005Q1

REPORT INFORMATION
  Report Type: 
  Country: None (occurrence: None)
  Receive Date: 20050119
  Receipt Date: 20031124
  Transmission Date: 20050727
  Serious: Yes (Hospitalization)
  Sender: FDA-Public Use
  Company Number: A03200302829

PATIENT
  Age: 81 Year
  Sex: Male
  Weight: 56.246 kg

DRUGS (3)
  1. PLAVIX [Suspect]
     Indication: TRANSIENT ISCHAEMIC ATTACK
     Dosage: 75 MG QD - ORAL
     Route: 048
     Dates: start: 20020101
  2. GLUCOSAMINE [Concomitant]
  3. VITAMIN E [Concomitant]

REACTIONS (2)
  - CONTUSION [None]
  - RECTAL HAEMORRHAGE [None]
